FAERS Safety Report 7030191-8 (Version None)
Quarter: 2010Q4

REPORT INFORMATION
  Report Type: 
  Country: None (occurrence: None)
  Receive Date: 20101001
  Receipt Date: 20100916
  Transmission Date: 20110411
  Serious: Yes (Hospitalization)
  Sender: FDA-Public Use
  Company Number: A-NJ2008-19325

PATIENT
  Age: 77 Year
  Sex: Female

DRUGS (4)
  1. TRACLEER [Suspect]
     Indication: PULMONARY ARTERIAL HYPERTENSION
     Dosage: ORAL
     Route: 048
     Dates: start: 20070406
  2. REMODULIN [Concomitant]
  3. REVATIO [Concomitant]
  4. CALCIUM CHANNEL BLOCKERS [Concomitant]

REACTIONS (7)
  - CARDIAC OPERATION [None]
  - ENDOCARDITIS [None]
  - FLUID RETENTION [None]
  - HEART VALVE INCOMPETENCE [None]
  - NASAL CONGESTION [None]
  - OEDEMA PERIPHERAL [None]
  - PLEURAL EFFUSION [None]
